FAERS Safety Report 8423362-7 (Version None)
Quarter: 2012Q2

REPORT INFORMATION
  Report Type: 
  Country: None (occurrence: None)
  Receive Date: 20120608
  Receipt Date: 20120530
  Transmission Date: 20120825
  Serious: Yes (Other)
  Sender: FDA-Public Use
  Company Number: CH-BAXTER-2012BAX007073

PATIENT
  Sex: Female
  Weight: 2.5 kg

DRUGS (3)
  1. ACETAZOLAMIDE [Suspect]
     Route: 064
     Dates: start: 20110407, end: 20110407
  2. CIPROFLOXACIN IN DEXTROSE 5% [Suspect]
     Route: 064
     Dates: start: 20110404, end: 20110408
  3. MALARONE [Suspect]
     Route: 064
     Dates: start: 20110418, end: 20110420

REACTIONS (2)
  - FOETAL GROWTH RESTRICTION [None]
  - FOETAL EXPOSURE DURING PREGNANCY [None]
